FAERS Safety Report 8518544-X (Version None)
Quarter: 2012Q3

REPORT INFORMATION
  Report Type: 
  Country: None (occurrence: None)
  Receive Date: 20120718
  Receipt Date: 20120510
  Transmission Date: 20120928
  Serious: Yes (Hospitalization)
  Sender: FDA-Public Use
  Company Number: US-BRISTOL-MYERS SQUIBB COMPANY-16583924

PATIENT
  Age: 68 Year
  Sex: Female

DRUGS (5)
  1. LISINOPRIL [Concomitant]
  2. COUMADIN [Suspect]
     Dosage: 2-5MG
  3. SPRYCEL [Suspect]
     Dates: start: 20120101
  4. PROTONIX [Concomitant]
  5. GABAPENTIN [Concomitant]

REACTIONS (1)
  - ULCER HAEMORRHAGE [None]
